FAERS Safety Report 4981875-4 (Version None)
Quarter: 2006Q2

REPORT INFORMATION
  Report Type: 
  Country: None (occurrence: None)
  Receive Date: 20060425
  Receipt Date: 20060407
  Transmission Date: 20061013
  Serious: Yes (Death)
  Sender: FDA-Public Use
  Company Number: FR-BRISTOL-MYERS SQUIBB COMPANY-13344387

PATIENT
  Age: 41 Year
  Sex: Male

DRUGS (7)
  1. ERBITUX [Suspect]
     Indication: COLORECTAL CANCER
     Dosage: INITATED 400 MG/M2 ON 21-FEB-2006.
     Route: 041
     Dates: start: 20060331, end: 20060331
  2. ELOXATIN [Suspect]
     Indication: COLORECTAL CANCER
  3. GEMZAR [Suspect]
     Indication: PANCREATIC CARCINOMA
  4. FENTANYL [Concomitant]
     Indication: DRUG USE FOR UNKNOWN INDICATION
     Dosage: 75 MCG/HOUR.
  5. GABAPENTIN [Concomitant]
     Indication: DRUG USE FOR UNKNOWN INDICATION
  6. PREDNISOLONE [Concomitant]
     Indication: DRUG USE FOR UNKNOWN INDICATION
  7. LANSOPRAZOLE [Concomitant]
     Indication: DRUG USE FOR UNKNOWN INDICATION

REACTIONS (1)
  - DYSPNOEA [None]
